FAERS Safety Report 20718139 (Version 2)
Quarter: 2022Q2

REPORT INFORMATION
  Report Type: Spontaneous
  Country: CH (occurrence: CH)
  Receive Date: 20220418
  Receipt Date: 20220502
  Transmission Date: 20220721
  Serious: Yes (Other)
  Sender: FDA-Public Use
  Company Number: CH-SM-2022-10859

PATIENT
  Age: 75 Year
  Sex: Male

DRUGS (2)
  1. YERVOY [Suspect]
     Active Substance: IPILIMUMAB
     Indication: Pleural mesothelioma
     Dosage: 1 MG/KG D1 Q42
     Route: 042
     Dates: start: 20210720, end: 20211206
  2. OPDIVO [Suspect]
     Active Substance: NIVOLUMAB
     Indication: Pleural mesothelioma
     Dosage: 3 MG/ KG D1 Q14
     Route: 042
     Dates: start: 20210720, end: 20211206

REACTIONS (2)
  - Uveitis [Recovering/Resolving]
  - Aortitis [Unknown]

NARRATIVE: CASE EVENT DATE: 20211201
